FAERS Safety Report 11740398 (Version 2)
Quarter: 2015Q4

REPORT INFORMATION
  Report Type: Spontaneous
  Country: US (occurrence: US)
  Receive Date: 20151110
  Receipt Date: 20151120
  Transmission Date: 20160304
  Serious: No
  Sender: FDA-Public Use
  Company Number: US-ELI_LILLY_AND_COMPANY-US201205000116

PATIENT
  Age: 58 Year
  Sex: Female

DRUGS (6)
  1. FORTEO [Suspect]
     Active Substance: TERIPARATIDE
     Indication: OSTEOPOROSIS
     Dosage: 20 UG, QD
     Route: 065
     Dates: start: 201110
  2. FORTEO [Suspect]
     Active Substance: TERIPARATIDE
     Dosage: 20 UG, QD
  3. FORTEO [Suspect]
     Active Substance: TERIPARATIDE
     Dosage: 20 UG, QD
  4. FORTEO [Suspect]
     Active Substance: TERIPARATIDE
     Dosage: 20 UG, QD
  5. FORTEO [Suspect]
     Active Substance: TERIPARATIDE
     Dosage: 20 UG, QD
  6. FORTEO [Suspect]
     Active Substance: TERIPARATIDE
     Dosage: 20 UG, QD

REACTIONS (17)
  - Weight increased [Unknown]
  - Injection site bruising [Recovered/Resolved]
  - Injection site swelling [Unknown]
  - Vomiting [Unknown]
  - Constipation [Not Recovered/Not Resolved]
  - Asthenia [Unknown]
  - Incorrect product storage [Unknown]
  - Abdominal distension [Unknown]
  - Pain [Unknown]
  - Waist circumference increased [Unknown]
  - Malaise [Not Recovered/Not Resolved]
  - Muscle spasms [Unknown]
  - Hypotonia [Not Recovered/Not Resolved]
  - Discomfort [Unknown]
  - Nausea [Unknown]
  - Mood disorder due to a general medical condition [Unknown]
  - Sinusitis [Not Recovered/Not Resolved]

NARRATIVE: CASE EVENT DATE: 201111
